FAERS Safety Report 14287587 (Version 1)
Quarter: 2017Q4

REPORT INFORMATION
  Report Type: Spontaneous
  Country: US (occurrence: US)
  Receive Date: 20171214
  Receipt Date: 20171214
  Transmission Date: 20180321
  Serious: No
  Sender: FDA-Public Use
  Company Number: US-ASTELLAS-2017US048219

PATIENT
  Sex: Male

DRUGS (2)
  1. TARCEVA [Suspect]
     Active Substance: ERLOTINIB HYDROCHLORIDE
     Dosage: 1 DF, ONCE DAILY (DOSE REDUCED TO ONE TAB DAILY)
     Route: 048
  2. TARCEVA [Suspect]
     Active Substance: ERLOTINIB HYDROCHLORIDE
     Indication: LUNG NEOPLASM MALIGNANT
     Dosage: 75 MG, ONCE DAILY (3 TABS ONCE DAILY)
     Route: 048
     Dates: start: 20171019

REACTIONS (1)
  - Drug intolerance [Not Recovered/Not Resolved]
